FAERS Safety Report 5825067-5 (Version None)
Quarter: 2008Q3

REPORT INFORMATION
  Report Type: 
  Country: None (occurrence: None)
  Receive Date: 20080729
  Receipt Date: 20080724
  Transmission Date: 20090109
  Serious: Yes (Hospitalization)
  Sender: FDA-Public Use
  Company Number: FR-BRISTOL-MYERS SQUIBB COMPANY-14279194

PATIENT
  Age: 90 Year
  Sex: Female

DRUGS (9)
  1. CORGARD [Suspect]
     Indication: HYPERTENSION
     Dosage: DOSE INCREASED TO 80 MG ON 16-JUN-2008, AND THEN STOPPED ON 25-JUN-2008.
     Route: 048
     Dates: start: 20070101, end: 20080624
  2. CORDARONE [Suspect]
     Indication: ATRIAL FIBRILLATION
     Dosage: 200MG TAB;100MG OD,200MGOD;25JUN-27JUN08;02JUL-03JUL08;1DAY,3DAYS,2DAYS
     Route: 048
     Dates: start: 20080618, end: 20080625
  3. KARDEGIC [Concomitant]
     Route: 048
  4. CORVASAL [Concomitant]
     Route: 048
  5. RAMIPRIL [Concomitant]
     Route: 048
  6. AMLOR [Concomitant]
     Route: 048
  7. NITROGLYCERIN [Concomitant]
     Route: 062
  8. PANTOPRAZOLE SODIUM [Concomitant]
     Route: 048
  9. MOVICOL [Concomitant]
     Route: 048

REACTIONS (5)
  - ATRIAL FIBRILLATION [None]
  - CHEST PAIN [None]
  - DRUG INTERACTION [None]
  - SINOATRIAL BLOCK [None]
  - SINUS BRADYCARDIA [None]
